FAERS Safety Report 9553970 (Version 1)
Quarter: 2013Q3

REPORT INFORMATION
  Report Type: Spontaneous
  Country: US (occurrence: None)
  Receive Date: 20130815
  Receipt Date: 20130815
  Transmission Date: 20140515
  Serious: Yes (Hospitalization, Other)
  Sender: FDA-Public Use
  Company Number: ADR-2013-00864

PATIENT
  Age: 16 Year
  Sex: Male

DRUGS (2)
  1. BACLOFEN INTRATHECAL [Suspect]
     Indication: MUSCLE SPASTICITY
  2. ORAL ANTI-SPASTICITY MEDICATIONS, UNKNOWN [Concomitant]

REACTIONS (6)
  - CSF test abnormal [None]
  - Pyrexia [None]
  - Purulent discharge [None]
  - Vomiting [None]
  - Implant site infection [None]
  - Implant site extravasation [None]
